FAERS Safety Report 6792993-2 (Version None)
Quarter: 2010Q2

REPORT INFORMATION
  Report Type: 
  Country: None (occurrence: None)
  Receive Date: 20100624
  Receipt Date: 20081114
  Transmission Date: 20101027
  Serious: No
  Sender: FDA-Public Use
  Company Number: US-PFIZER INC-2008092859

PATIENT
  Sex: Female
  Weight: 73.6 kg

DRUGS (8)
  1. COLESTID [Suspect]
     Indication: BLOOD CHOLESTEROL ABNORMAL
     Route: 048
  2. COLESTID [Suspect]
     Route: 048
  3. PLAVIX [Concomitant]
  4. SYNTHROID [Concomitant]
  5. VALSARTAN [Concomitant]
  6. COREG [Concomitant]
  7. PRAVASTATIN [Concomitant]
  8. XALATAN [Concomitant]

REACTIONS (2)
  - DYSPHAGIA [None]
  - WEIGHT DECREASED [None]
